FAERS Safety Report 4554045-1 (Version None)
Quarter: 2005Q1

REPORT INFORMATION
  Report Type: 
  Country: None (occurrence: None)
  Receive Date: 20050118
  Receipt Date: 20050112
  Transmission Date: 20050727
  Serious: Yes (Life-Threatening, Disabling)
  Sender: FDA-Public Use
  Company Number: US-MERCK-0501USA01020

PATIENT
  Sex: Female

DRUGS (3)
  1. VYTORIN [Suspect]
     Route: 048
  2. ERYTHROMYCIN [Suspect]
     Route: 065
  3. [THERAPY UNSPECIFIED] [Suspect]
     Route: 065

REACTIONS (1)
  - ADVERSE EVENT [None]
